FAERS Safety Report 6654157-2 (Version None)
Quarter: 2010Q1

REPORT INFORMATION
  Report Type: 
  Country: None (occurrence: None)
  Receive Date: 20100326
  Receipt Date: 20100315
  Transmission Date: 20100710
  Serious: Yes (Other)
  Sender: FDA-Public Use
  Company Number: BR-PFIZER INC-2010034092

PATIENT
  Sex: Male

DRUGS (2)
  1. VIAGRA [Suspect]
     Dosage: 25 MG, DAILY
     Route: 048
  2. LODENAFIL CARBONATE [Suspect]

REACTIONS (2)
  - HAEMOGLOBIN DECREASED [None]
  - RENAL TRANSPLANT [None]
